FAERS Safety Report 7687004-0 (Version None)
Quarter: 2011Q3

REPORT INFORMATION
  Report Type: 
  Country: None (occurrence: None)
  Receive Date: 20110816
  Receipt Date: 20110808
  Transmission Date: 20111222
  Serious: Yes (Other)
  Sender: FDA-Public Use
  Company Number: GB-ABBOTT-11P-167-0701741-00

PATIENT
  Sex: Male
  Weight: 104 kg

DRUGS (6)
  1. IBUPROFEN [Concomitant]
     Indication: SARCOIDOSIS
     Route: 048
     Dates: start: 20090101
  2. HUMIRA [Suspect]
     Indication: SARCOIDOSIS
     Route: 058
     Dates: start: 20110124, end: 20110127
  3. PREDNISOLONE [Concomitant]
     Indication: SARCOIDOSIS
     Route: 048
     Dates: start: 20040101
  4. FLECAINIDE ACETATE [Concomitant]
     Indication: ARRHYTHMIA
     Route: 048
     Dates: start: 20100101, end: 20110201
  5. ALENDRONIC ACID [Concomitant]
     Indication: SARCOIDOSIS
     Route: 048
     Dates: start: 20080101
  6. METHOTREXATE [Concomitant]
     Indication: SARCOIDOSIS
     Route: 048
     Dates: start: 20100101

REACTIONS (10)
  - PARAESTHESIA [None]
  - DIZZINESS [None]
  - HEADACHE [None]
  - CARDIAC DISORDER [None]
  - MYALGIA [None]
  - DYSPNOEA [None]
  - MALAISE [None]
  - PALPITATIONS [None]
  - CHEST PAIN [None]
  - HYPERSENSITIVITY [None]
